APPROVED DRUG PRODUCT: AVITA
Active Ingredient: TRETINOIN
Strength: 0.025%
Dosage Form/Route: CREAM;TOPICAL
Application: N020404 | Product #003 | TE Code: AB
Applicant: MYLAN PHARMACEUTICALS INC
Approved: Jan 14, 1997 | RLD: No | RS: No | Type: RX